FAERS Safety Report 9804056 (Version 2)
Quarter: 2014Q2

REPORT INFORMATION
  Report Type: Spontaneous
  Country: IT (occurrence: None)
  Receive Date: 20140103
  Receipt Date: 20140626
  Transmission Date: 20141212
  Serious: Yes (Other)
  Sender: FDA-Public Use
  Company Number: KAD201312-001763

PATIENT
  Age: 11 Year
  Sex: Male

DRUGS (1)
  1. ANASTROZOLE [Suspect]
     Indication: GYNAECOMASTIA

REACTIONS (2)
  - Growth retardation [None]
  - Off label use [None]
